FAERS Safety Report 17116437 (Version 2)
Quarter: 2019Q4

REPORT INFORMATION
  Report Type: Spontaneous
  Country: CN (occurrence: CN)
  Receive Date: 20191205
  Receipt Date: 20191205
  Transmission Date: 20200122
  Serious: Yes (Other)
  Sender: FDA-Public Use
  Company Number: CN-009507513-1912CHN000910

PATIENT
  Age: 62 Year
  Sex: Male
  Weight: 67 kg

DRUGS (8)
  1. KEYTRUDA [Suspect]
     Active Substance: PEMBROLIZUMAB
     Dosage: 200 MILLIGRAM,  (2 CYCLE), EVERY 3 WEEKS
     Dates: start: 20190615, end: 20190615
  2. CISPLATIN. [Suspect]
     Active Substance: CISPLATIN
     Indication: LUNG SQUAMOUS CELL CARCINOMA STAGE III
     Dosage: DOSE: 75 MG/M2 (70MG) DAY 1
     Dates: start: 20190511, end: 20190511
  3. KEYTRUDA [Suspect]
     Active Substance: PEMBROLIZUMAB
     Indication: LUNG SQUAMOUS CELL CARCINOMA STAGE III
     Dosage: DOSE: 200MG, 1 CYCLE (D1) DAY 1, EVERY 3 WEEKS
     Dates: start: 20190511, end: 20190511
  4. GEMCITABINE. [Suspect]
     Active Substance: GEMCITABINE
     Dosage: DOSE: 1250 MG/M2 (2,2 GRAMOS) DAY 1 (1 CYCLE)
     Dates: start: 20190511, end: 20190511
  5. CISPLATIN. [Suspect]
     Active Substance: CISPLATIN
     Dosage: 60 DOSE: 60MG DAY 2, Q3W (1 CYCLE)
     Dates: start: 20190512, end: 20190512
  6. GEMCITABINE. [Suspect]
     Active Substance: GEMCITABINE
     Dosage: DOSE: 1250 MG/M2 (2,2 GRAMOS) DAY 8 (CYCLE 2)
     Dates: start: 20190615, end: 20190615
  7. CISPLATIN. [Suspect]
     Active Substance: CISPLATIN
     Dosage: DOSE: 75 MG/M2 (60MG) DAY 2, Q3W
     Dates: start: 20190615, end: 20190615
  8. CISPLATIN. [Suspect]
     Active Substance: CISPLATIN
     Dosage: DOSE: 60MG DAY 2, Q3W (2 CYCLE)
     Dates: start: 20190616, end: 20190616

REACTIONS (1)
  - Liver injury [Recovering/Resolving]

NARRATIVE: CASE EVENT DATE: 20190806
